FAERS Safety Report 13551755 (Version 1)
Quarter: 2017Q2

REPORT INFORMATION
  Report Type: Spontaneous
  Country: AU (occurrence: AU)
  Receive Date: 20170516
  Receipt Date: 20170516
  Transmission Date: 20170830
  Serious: Yes (Hospitalization, Other)
  Sender: FDA-Public Use
  Company Number: AU-UNICHEM LABORATORIES LIMITED-UCM201705-000110

PATIENT
  Age: 15 Year
  Sex: Male
  Weight: 70 kg

DRUGS (11)
  1. VENLAFAXINE [Suspect]
     Active Substance: VENLAFAXINE HYDROCHLORIDE
  2. PROMETHAZINE [Suspect]
     Active Substance: PROMETHAZINE\PROMETHAZINE HYDROCHLORIDE
  3. AMLODIPINE [Suspect]
     Active Substance: AMLODIPINE BESYLATE
  4. DESVENLAFAXINE. [Suspect]
     Active Substance: DESVENLAFAXINE
  5. FLUOXETINE [Suspect]
     Active Substance: FLUOXETINE HYDROCHLORIDE
  6. METHYLENE BLUE. [Suspect]
     Active Substance: METHYLENE BLUE
  7. METHYLENE BLUE. [Suspect]
     Active Substance: METHYLENE BLUE
  8. METHYLENE BLUE. [Suspect]
     Active Substance: METHYLENE BLUE
  9. QUETIAPINE. [Suspect]
     Active Substance: QUETIAPINE
  10. RAMIPRIL. [Suspect]
     Active Substance: RAMIPRIL
  11. LITHIUM. [Suspect]
     Active Substance: LITHIUM

REACTIONS (4)
  - Overdose [Unknown]
  - Serotonin syndrome [Recovered/Resolved]
  - Shock [Recovered/Resolved]
  - Pneumonia [Recovered/Resolved]
